FAERS Safety Report 9247882 (Version 6)
Quarter: 2013Q3

REPORT INFORMATION
  Report Type: Report from Study
  Country: DE (occurrence: DE)
  Receive Date: 20130423
  Receipt Date: 20130924
  Transmission Date: 20140515
  Serious: Yes (Hospitalization)
  Sender: FDA-Public Use
  Company Number: DE-CELGENEUS-062-21880-13040150

PATIENT
  Age: 60 Year
  Sex: Female
  Weight: 88 kg

DRUGS (33)
  1. REVLIMID [Suspect]
     Indication: PLASMA CELL MYELOMA
     Dosage: D1-21
     Route: 048
     Dates: start: 20120104, end: 20120124
  2. REVLIMID [Suspect]
     Dosage: D1-16
     Route: 048
     Dates: start: 20120424, end: 20120509
  3. REVLIMID [Suspect]
     Dosage: 15 MILLIGRAM
     Route: 048
     Dates: start: 20120626, end: 20130304
  4. REVLIMID [Suspect]
     Dosage: D1-15
     Route: 048
     Dates: start: 20130312, end: 20130326
  5. DEXAMETHASONE [Suspect]
     Indication: PLASMA CELL MYELOMA
     Dosage: 40 MILLIGRAM
     Route: 065
     Dates: start: 20120104, end: 20120125
  6. DEXAMETHASONE [Suspect]
     Dosage: 20 MILLIGRAM
     Route: 065
     Dates: start: 20120424, end: 20120508
  7. DEXAMETHASONE [Suspect]
     Dosage: 20 MILLIGRAM
     Route: 065
     Dates: start: 20130115, end: 20130205
  8. DEXAMETHASONE [Suspect]
     Dosage: 20 MILLIGRAM
     Route: 048
     Dates: start: 20130312, end: 20130326
  9. DEXAMETHASONE [Suspect]
     Route: 065
     Dates: start: 200708, end: 200710
  10. CARFILZOMIB [Suspect]
     Indication: PLASMA CELL MYELOMA
     Dosage: D1-2
     Route: 065
     Dates: start: 20120104, end: 20120105
  11. CARFILZOMIB [Suspect]
     Dosage: 54.81 MILLIGRAM
     Route: 065
     Dates: start: 20120111, end: 20120118
  12. CARFILZOMIB [Suspect]
     Dosage: 55 MILLIGRAM
     Route: 065
     Dates: start: 20120131, end: 20120201
  13. CARFILZOMIB [Suspect]
     Dosage: 54.81 MILLIGRAM
     Route: 065
     Dates: start: 20120207, end: 20120314
  14. CARFILZOMIB [Suspect]
     Dosage: 55 MILLIGRAM
     Route: 065
     Dates: start: 20120327, end: 20120328
  15. CARFILZOMIB [Suspect]
     Dosage: 55 MILLIGRAM
     Route: 065
     Dates: start: 20120424, end: 20120725
  16. CARFILZOMIB [Suspect]
     Route: 065
     Dates: start: 20120807, end: 20121205
  17. CARFILZOMIB [Suspect]
     Route: 065
     Dates: start: 20121218, end: 20130227
  18. CARFILZOMIB [Suspect]
     Route: 065
     Dates: start: 20130312, end: 20130327
  19. ACICLOVIR [Concomitant]
     Indication: ANTIVIRAL PROPHYLAXIS
     Route: 048
     Dates: start: 20120103
  20. ACETYLSALICYLIC ACID [Concomitant]
     Indication: ANTICOAGULANT THERAPY
     Dosage: 100 MILLIGRAM
     Route: 048
     Dates: start: 20120103
  21. ACETYLSALICYLIC ACID [Concomitant]
     Indication: ANTIPLATELET THERAPY
  22. CARMEN [Concomitant]
     Indication: HYPERTENSION
     Dosage: 20 MILLIGRAM
     Route: 048
     Dates: start: 20120105
  23. COTRIM FORTE [Concomitant]
     Indication: ANTIBIOTIC PROPHYLAXIS
     Dosage: MON AND WED
     Route: 048
     Dates: start: 20120104
  24. HUMAN INSULIN PROFIL III [Concomitant]
     Indication: BLOOD GLUCOSE INCREASED
     Route: 058
     Dates: start: 2007
  25. JODTHYROX [Concomitant]
     Indication: GOITRE
     Dosage: 50 MICROGRAM
     Route: 048
     Dates: start: 20040301
  26. KALINOR BRAUSE [Concomitant]
     Indication: PROPHYLAXIS
     Route: 048
     Dates: start: 20120104
  27. POTASSIUM [Concomitant]
     Indication: HYPOKALAEMIA
     Route: 048
     Dates: start: 20130104
  28. MAGNESIUM OXIDE [Concomitant]
     Indication: MUSCLE SPASMS
     Route: 048
     Dates: start: 20120626
  29. ONGLYZA [Concomitant]
     Indication: TYPE 2 DIABETES MELLITUS
     Dosage: 5 MILLIGRAM
     Route: 048
     Dates: start: 2007
  30. ORTHOVITA VITAMIN C RETARD PLUS ZINC [Concomitant]
     Indication: SUPPLEMENTATION THERAPY
     Dosage: 350 MILLIGRAM
     Route: 048
     Dates: start: 2009
  31. PANTOZOL [Concomitant]
     Indication: GASTRITIS PROPHYLAXIS
     Dosage: 40 MILLIGRAM
     Route: 048
     Dates: start: 200506
  32. TAVANIC [Concomitant]
     Indication: ANTIBIOTIC PROPHYLAXIS
     Dosage: 500 MILLIGRAM
     Route: 048
     Dates: start: 20120103
  33. VIGANTOLETTEN [Concomitant]
     Indication: SUPPLEMENTATION THERAPY
     Dosage: 500 IU (INTERNATIONAL UNIT)
     Route: 048
     Dates: start: 2009

REACTIONS (1)
  - Adenocarcinoma of colon [Recovered/Resolved]
